FAERS Safety Report 11714954 (Version 1)
Quarter: 2015Q4

REPORT INFORMATION
  Report Type: Report from Study
  Country: DE (occurrence: DE)
  Receive Date: 20151109
  Receipt Date: 20151109
  Transmission Date: 20160304
  Serious: Yes (Hospitalization)
  Sender: FDA-Public Use
  Company Number: DE-ABBVIE-15P-062-1494705-00

PATIENT
  Sex: Female

DRUGS (1)
  1. DUODOPA [Suspect]
     Active Substance: CARBIDOPA\LEVODOPA
     Indication: PARKINSON^S DISEASE
     Dosage: MD: 7 ML, CRD: 2 ML/H, ED: 1 ML
     Route: 050
     Dates: start: 20150519

REACTIONS (3)
  - Hand fracture [Recovered/Resolved]
  - Fall [Recovered/Resolved]
  - Hyperkinesia [Recovered/Resolved]
